FAERS Safety Report 5255575-X (Version None)
Quarter: 2007Q1

REPORT INFORMATION
  Report Type: 
  Country: None (occurrence: None)
  Receive Date: 20070228
  Receipt Date: 20070222
  Transmission Date: 20070707
  Serious: Yes (Other)
  Sender: FDA-Public Use
  Company Number: GXKR2007DE01826

PATIENT
  Age: 42 Year
  Sex: Female

DRUGS (2)
  1. PARACETAMOL HEXAL (NGX) (PARACETAMOL) TABLET, 500MG [Suspect]
     Dosage: UNK, UNK, ORAL
     Route: 048
  2. DOXYCYCLINE ^RATIOPHARM^ (DOXYCYCLINE HYCLATE) [Concomitant]

REACTIONS (2)
  - ANGIOEDEMA [None]
  - FACE OEDEMA [None]
